FAERS Safety Report 10276139 (Version 5)
Quarter: 2016Q1

REPORT INFORMATION
  Report Type: Report from Study
  Country: US (occurrence: US)
  Receive Date: 20140703
  Receipt Date: 20160311
  Transmission Date: 20160525
  Serious: Yes (Death, Hospitalization)
  Sender: FDA-Public Use
  Company Number: US-SA-CAMP-1002330

PATIENT
  Age: 82 Year
  Sex: Male
  Weight: 45.1 kg

DRUGS (9)
  1. ALEMTUZUMAB [Suspect]
     Active Substance: ALEMTUZUMAB
     Indication: CHRONIC LYMPHOCYTIC LEUKAEMIA
     Dosage: 10 MG, CYCLE 1: DAY 2
     Route: 058
     Dates: start: 2012, end: 2012
  2. ALEMTUZUMAB [Suspect]
     Active Substance: ALEMTUZUMAB
     Indication: CHRONIC LYMPHOCYTIC LEUKAEMIA
     Dosage: CYCLE 1: ON DAYS 6, 8, 10, 13, 15, 17, 20, 22, 24, 27, 29, 31
     Route: 058
     Dates: start: 2012, end: 2012
  3. ALEMTUZUMAB [Suspect]
     Active Substance: ALEMTUZUMAB
     Indication: CHRONIC LYMPHOCYTIC LEUKAEMIA
     Dosage: 30 MG, CYCLE 1: DAY 3
     Route: 058
     Dates: start: 2012, end: 2012
  4. RITUXIMAB [Suspect]
     Active Substance: RITUXIMAB
     Indication: CHRONIC LYMPHOCYTIC LEUKAEMIA
     Route: 042
     Dates: start: 20120225, end: 20120427
  5. ALEMTUZUMAB [Suspect]
     Active Substance: ALEMTUZUMAB
     Indication: CHRONIC LYMPHOCYTIC LEUKAEMIA
     Route: 058
     Dates: start: 20120402, end: 20120427
  6. RITUXIMAB [Suspect]
     Active Substance: RITUXIMAB
     Indication: CHRONIC LYMPHOCYTIC LEUKAEMIA
     Dosage: 375 MG/M2, ON DAYS 3, 10, 17, 24 OF CYCLE 2
     Route: 042
     Dates: start: 2012, end: 2012
  7. ALEMTUZUMAB [Suspect]
     Active Substance: ALEMTUZUMAB
     Indication: CHRONIC LYMPHOCYTIC LEUKAEMIA
     Dosage: CYCLE 2: ON DAYS 1, 3, 5, 8, 10, 13, 15, 17, 19, 22, 24, 26
     Route: 058
     Dates: start: 2012, end: 2012
  8. RITUXIMAB [Suspect]
     Active Substance: RITUXIMAB
     Indication: CHRONIC LYMPHOCYTIC LEUKAEMIA
     Dosage: 375 MG/M2, ON DAYS 8, 15, 22, 29 OF CYCLE 1
     Route: 042
     Dates: start: 2012, end: 2012
  9. ALEMTUZUMAB [Suspect]
     Active Substance: ALEMTUZUMAB
     Indication: CHRONIC LYMPHOCYTIC LEUKAEMIA
     Dosage: 3 MG, CYCLE 1: DAY 1
     Route: 058
     Dates: start: 20120225

REACTIONS (2)
  - Hemiparesis [Unknown]
  - Progressive multifocal leukoencephalopathy [Fatal]

NARRATIVE: CASE EVENT DATE: 201207
